FAERS Safety Report 14840720 (Version 1)
Quarter: 2018Q2

REPORT INFORMATION
  Report Type: Report from Study
  Country: JP (occurrence: JP)
  Receive Date: 20180503
  Receipt Date: 20180503
  Transmission Date: 20180711
  Serious: Yes (Other)
  Sender: FDA-Public Use
  Company Number: JP-UCBSA-063568

PATIENT
  Age: 26 Year
  Sex: Female
  Weight: 49.9 kg

DRUGS (17)
  1. LAMICTAL [Concomitant]
     Active Substance: LAMOTRIGINE
     Indication: SIMPLE PARTIAL SEIZURES
     Dosage: 425 MG
     Route: 048
     Dates: start: 20110822
  2. EXCEGRAN [Concomitant]
     Active Substance: ZONISAMIDE
     Indication: FOCAL DYSCOGNITIVE SEIZURES
  3. LEVETIRACETAM. [Suspect]
     Active Substance: LEVETIRACETAM
     Indication: FOCAL DYSCOGNITIVE SEIZURES
     Dosage: 500 MG, ONCE DAILY (QD)
     Route: 048
     Dates: start: 20110523, end: 20110529
  4. DEPAKENE [Concomitant]
     Active Substance: VALPROIC ACID
     Indication: FOCAL DYSCOGNITIVE SEIZURES
  5. LEVETIRACETAM. [Suspect]
     Active Substance: LEVETIRACETAM
     Dosage: 625 MG, 2X/DAY (BID)
     Route: 048
     Dates: start: 20110617, end: 20110623
  6. LEVETIRACETAM. [Suspect]
     Active Substance: LEVETIRACETAM
     Dosage: 750 MG, 2X/DAY (BID)
     Route: 048
     Dates: start: 20110624, end: 20110711
  7. LEVETIRACETAM. [Suspect]
     Active Substance: LEVETIRACETAM
     Indication: SIMPLE PARTIAL SEIZURES
     Dosage: 250 MG, ONCE DAILY (QD)
     Route: 048
     Dates: start: 20110517, end: 20110522
  8. LEVETIRACETAM. [Suspect]
     Active Substance: LEVETIRACETAM
     Dosage: 1000 MG, ONCE DAILY (QD)
     Route: 048
     Dates: start: 20110606, end: 20110616
  9. LEVETIRACETAM. [Suspect]
     Active Substance: LEVETIRACETAM
     Dosage: 875 MG, 2X/DAY (BID)
     Route: 048
     Dates: start: 20110712, end: 20110720
  10. MYSTAN [Concomitant]
     Active Substance: CLOBAZAM
     Indication: SIMPLE PARTIAL SEIZURES
     Dosage: 10 MG
     Route: 048
  11. LAMICTAL [Concomitant]
     Active Substance: LAMOTRIGINE
     Indication: FOCAL DYSCOGNITIVE SEIZURES
  12. TEGRETOL [Concomitant]
     Active Substance: CARBAMAZEPINE
     Indication: SIMPLE PARTIAL SEIZURES
     Dosage: 600 MG
     Route: 048
     Dates: end: 20111006
  13. TEGRETOL [Concomitant]
     Active Substance: CARBAMAZEPINE
     Indication: FOCAL DYSCOGNITIVE SEIZURES
  14. MYSTAN [Concomitant]
     Active Substance: CLOBAZAM
     Indication: FOCAL DYSCOGNITIVE SEIZURES
  15. LEVETIRACETAM. [Suspect]
     Active Substance: LEVETIRACETAM
     Dosage: 750 MG, ONCE DAILY (QD)
     Route: 048
     Dates: start: 20110530, end: 20110605
  16. EXCEGRAN [Concomitant]
     Active Substance: ZONISAMIDE
     Indication: SIMPLE PARTIAL SEIZURES
     Dosage: 300 MG
     Route: 048
     Dates: end: 20110707
  17. DEPAKENE [Concomitant]
     Active Substance: VALPROIC ACID
     Indication: SIMPLE PARTIAL SEIZURES
     Dosage: 400 MG
     Route: 054
     Dates: start: 20111014

REACTIONS (1)
  - Epilepsy [Recovered/Resolved]

NARRATIVE: CASE EVENT DATE: 20110720
